FAERS Safety Report 18366197 (Version 1)
Quarter: 2020Q4

REPORT INFORMATION
  Report Type: Report from Study
  Country: US (occurrence: US)
  Receive Date: 20201009
  Receipt Date: 20201009
  Transmission Date: 20210114
  Serious: Yes (Hospitalization, Other)
  Sender: FDA-Public Use
  Company Number: US-GILEAD-2020-0497890

PATIENT
  Sex: Female

DRUGS (4)
  1. TOCAINIDE. [Concomitant]
     Active Substance: TOCAINIDE
     Dosage: 20 MG
  2. AMBRISENTAN [Suspect]
     Active Substance: AMBRISENTAN
     Indication: PULMONARY HYPERTENSION
     Dosage: 10 MG, QD
     Route: 065
     Dates: start: 20200414
  3. TYVASO [Concomitant]
     Active Substance: TREPROSTINIL
  4. ELIQUIS [Concomitant]
     Active Substance: APIXABAN
     Dosage: 2.5 MG, BID

REACTIONS (3)
  - Transfusion [Unknown]
  - General physical health deterioration [Not Recovered/Not Resolved]
  - Cardiac failure [Unknown]
